FAERS Safety Report 7375171-8 (Version None)
Quarter: 2011Q1

REPORT INFORMATION
  Report Type: 
  Country: None (occurrence: None)
  Receive Date: 20110325
  Receipt Date: 20110315
  Transmission Date: 20110831
  Serious: Yes (Other)
  Sender: FDA-Public Use
  Company Number: US-ROCHE-762162

PATIENT
  Sex: Male
  Weight: 69.4 kg

DRUGS (3)
  1. BENADRYL [Concomitant]
     Dosage: ROUTE:IVP
     Dates: start: 20110128
  2. ACETAMINOPHEN [Concomitant]
     Dosage: DOSE:650MG
     Route: 048
     Dates: start: 20110128
  3. AVASTIN [Suspect]
     Route: 042
     Dates: start: 20100603, end: 20110218

REACTIONS (1)
  - OSTEONECROSIS OF JAW [None]
